FAERS Safety Report 6498309-3 (Version None)
Quarter: 2009Q4

REPORT INFORMATION
  Report Type: 
  Country: None (occurrence: None)
  Receive Date: 20091215
  Receipt Date: 20091208
  Transmission Date: 20100525
  Serious: Yes (Hospitalization)
  Sender: FDA-Public Use
  Company Number: JP-EISAI INC.-E2090-00884-SPO-JP

PATIENT
  Sex: Male

DRUGS (10)
  1. EXCEGRAN [Suspect]
     Indication: EPILEPSY
     Route: 048
     Dates: start: 20070718, end: 20070904
  2. ALEVIATIN [Suspect]
     Indication: EPILEPSY
     Route: 048
     Dates: start: 20070720, end: 20070828
  3. DOGMATYL [Concomitant]
     Indication: DEPRESSION
     Route: 048
     Dates: start: 20070411, end: 20070911
  4. TOLEDOMIN [Concomitant]
     Indication: DEPRESSION
     Route: 048
     Dates: start: 20070516, end: 20070619
  5. TOLEDOMIN [Concomitant]
     Route: 048
     Dates: start: 20070620, end: 20070911
  6. GABAPEN [Concomitant]
     Dates: start: 20070829
  7. ALLELOCK [Concomitant]
     Dates: start: 20070829
  8. RIZE [Concomitant]
     Indication: DEPRESSION
     Dates: start: 20070411
  9. LENDORMIN [Concomitant]
     Indication: DEPRESSION
     Dates: start: 20070411
  10. BENZALIN [Concomitant]
     Indication: DEPRESSION
     Dates: start: 20070411

REACTIONS (1)
  - DRUG RASH WITH EOSINOPHILIA AND SYSTEMIC SYMPTOMS [None]
